FAERS Safety Report 5807884-0 (Version None)
Quarter: 2008Q3

REPORT INFORMATION
  Report Type: 
  Country: None (occurrence: None)
  Receive Date: 20080711
  Receipt Date: 20080622
  Transmission Date: 20090109
  Serious: No
  Sender: FDA-Public Use
  Company Number: US-BOEHRINGER INGELHEIM GMBH, GERMANY-2008-BP-09709BP

PATIENT

DRUGS (2)
  1. MICARDIS [Suspect]
  2. AVANDIA [Suspect]

REACTIONS (1)
  - RASH [None]
